FAERS Safety Report 13470180 (Version 1)
Quarter: 2017Q2

REPORT INFORMATION
  Report Type: Spontaneous
  Country: US (occurrence: US)
  Receive Date: 20170421
  Receipt Date: 20170421
  Transmission Date: 20170830
  Serious: No
  Sender: FDA-Public Use
  Company Number: None

PATIENT
  Age: 66 Year
  Sex: Male
  Weight: 121.5 kg

DRUGS (9)
  1. ESZOPICLONE. [Concomitant]
     Active Substance: ESZOPICLONE
  2. ESZOPICLONE. [Suspect]
     Active Substance: ESZOPICLONE
     Indication: SLEEP DISORDER
     Dosage: ?          QUANTITY:1 TABLET(S);?
     Route: 048
     Dates: start: 20170330, end: 20170420
  3. LISINOPRIL. [Concomitant]
     Active Substance: LISINOPRIL
  4. TOPROX XL [Concomitant]
  5. FLECAINIDE [Concomitant]
     Active Substance: FLECAINIDE
  6. GLUCOSAMINE [Concomitant]
     Active Substance: GLUCOSAMINE
  7. VITAMIN B1 [Concomitant]
     Active Substance: THIAMINE HYDROCHLORIDE
  8. LORAZEPAM. [Concomitant]
     Active Substance: LORAZEPAM
  9. ELIQUIS [Concomitant]
     Active Substance: APIXABAN

REACTIONS (5)
  - Wrong technique in product usage process [None]
  - Product measured potency issue [None]
  - Drug ineffective [None]
  - Product quality issue [None]
  - Drug effect decreased [None]

NARRATIVE: CASE EVENT DATE: 20170420
